FAERS Safety Report 4642462-0 (Version None)
Quarter: 2005Q2

REPORT INFORMATION
  Report Type: 
  Country: None (occurrence: None)
  Receive Date: 20050422
  Receipt Date: 20050413
  Transmission Date: 20051028
  Serious: Yes (Disabling)
  Sender: FDA-Public Use
  Company Number: JP-ROCHE-402003

PATIENT
  Age: 4 Year
  Sex: Female

DRUGS (3)
  1. HORIZON [Suspect]
     Indication: CLONIC CONVULSION
     Route: 042
  2. THEOPHYLLINE [Concomitant]
     Route: 048
  3. PHENYTOIN [Suspect]
     Indication: CLONIC CONVULSION
     Route: 042

REACTIONS (6)
  - CARDIOVASCULAR DISORDER [None]
  - CEREBRAL ATROPHY [None]
  - CONDITION AGGRAVATED [None]
  - CONVULSION [None]
  - ENCEPHALOPATHY [None]
  - MENTAL IMPAIRMENT [None]
